FAERS Safety Report 8547935-6 (Version None)
Quarter: 2012Q3

REPORT INFORMATION
  Report Type: 
  Country: None (occurrence: None)
  Receive Date: 20120728
  Receipt Date: 20101123
  Transmission Date: 20120928
  Serious: Yes (Other)
  Sender: FDA-Public Use
  Company Number: US-BAYER-201038201NA

PATIENT
  Age: 24 Year
  Sex: Female
  Weight: 64.399 kg

DRUGS (12)
  1. YAZ [Suspect]
     Indication: ACNE
  2. DROSPIRENONE AND ETHINYL ESTRADIOL [Suspect]
     Indication: ACNE
  3. YASMIN [Suspect]
     Indication: ORAL CONTRACEPTION
  4. ACETAMINOPHEN W/ CODEINE [Concomitant]
     Dosage: UNK
     Route: 048
     Dates: start: 20040218
  5. CLINDAMYCIN HCL [Concomitant]
     Dosage: 150 MG, UNK
     Route: 048
     Dates: start: 20040225
  6. IBUPROFEN [Concomitant]
     Dosage: 800 MG, UNK
     Route: 048
     Dates: start: 20020922
  7. DIAZEPAM [Concomitant]
     Dosage: 5 MG, UNK
     Route: 048
     Dates: start: 20040217
  8. AMOXICILLIN [Concomitant]
     Dosage: 500 MG, UNK
     Route: 048
     Dates: start: 20040220
  9. DIETARY SUPPLEMENTS [Concomitant]
  10. YASMIN [Suspect]
     Indication: ACNE
     Dosage: UNK DF, UNK
     Dates: start: 20030401, end: 20050401
  11. METROGEL [Concomitant]
     Dosage: 0.75 %, UNK
     Route: 067
     Dates: start: 20031210
  12. LORTAB [Concomitant]

REACTIONS (8)
  - CHOLECYSTITIS CHRONIC [None]
  - ABDOMINAL PAIN UPPER [None]
  - DECREASED APPETITE [None]
  - GALLBLADDER DISORDER [None]
  - NAUSEA [None]
  - BILIARY DYSKINESIA [None]
  - VOMITING [None]
  - TENDERNESS [None]
